FAERS Safety Report 23554251 (Version 1)
Quarter: 2024Q1

REPORT INFORMATION
  Report Type: Spontaneous
  Country: PT (occurrence: PT)
  Receive Date: 20240222
  Receipt Date: 20240222
  Transmission Date: 20240410
  Serious: Yes (Other)
  Sender: FDA-Public Use
  Company Number: PT-JNJFOC-20240232794

PATIENT
  Age: 52 Year
  Sex: Male

DRUGS (1)
  1. RYBREVANT [Suspect]
     Active Substance: AMIVANTAMAB-VMJW
     Indication: Glioblastoma
     Route: 065
     Dates: start: 20240207

REACTIONS (2)
  - Skin reaction [Recovered/Resolved]
  - Off label use [Unknown]
